FAERS Safety Report 6043588-X (Version None)
Quarter: 2009Q1

REPORT INFORMATION
  Report Type: 
  Country: None (occurrence: None)
  Receive Date: 20090115
  Receipt Date: 20090115
  Transmission Date: 20090719
  Serious: Yes (Other)
  Sender: FDA-Public Use
  Company Number: None

PATIENT
  Sex: Male
  Weight: 122.4712 kg

DRUGS (1)
  1. ALEVE [Suspect]
     Indication: FIBROMYALGIA
     Dosage: 220MG TWO PER DAY PO
     Route: 048

REACTIONS (1)
  - DEPRESSION [None]
